FAERS Safety Report 8831443 (Version 1)
Quarter: 2012Q4

REPORT INFORMATION
  Report Type: 
  Country: US (occurrence: US)
  Receive Date: 20121009
  Receipt Date: 20121009
  Transmission Date: 20130627
  Serious: No
  Sender: FDA-Public Use
  Company Number: US-TEVA-334904USA

PATIENT

DRUGS (1)
  1. PACLITAXEL [Suspect]
     Dosage: 300 mg/50 ml

REACTIONS (3)
  - Rash [Unknown]
  - Pain in extremity [Unknown]
  - Neuropathy peripheral [Unknown]
